FAERS Safety Report 10569063 (Version 3)
Quarter: 2014Q4

REPORT INFORMATION
  Report Type: Report from Study
  Country: DE (occurrence: DE)
  Receive Date: 20141106
  Receipt Date: 20141215
  Transmission Date: 20150529
  Serious: Yes (Death, Life-Threatening, Hospitalization)
  Sender: FDA-Public Use
  Company Number: PHHY2014DE142182

PATIENT
  Sex: Female
  Weight: 68 kg

DRUGS (2)
  1. AFINITOR [Suspect]
     Active Substance: EVEROLIMUS
     Indication: BREAST CANCER METASTATIC
     Dosage: 10 MG, QD
     Route: 048
     Dates: start: 20141011
  2. EXEMESTANE. [Concomitant]
     Active Substance: EXEMESTANE
     Indication: BREAST CANCER METASTATIC
     Dosage: 25 MG, QD
     Route: 048
     Dates: start: 20141011

REACTIONS (9)
  - Alanine aminotransferase increased [Fatal]
  - Hyperbilirubinaemia [Fatal]
  - Stomatitis [Not Recovered/Not Resolved]
  - Malaise [Unknown]
  - Cardiac arrest [Fatal]
  - Weight decreased [Not Recovered/Not Resolved]
  - Aspartate aminotransferase increased [Fatal]
  - Thrombocytopenia [Not Recovered/Not Resolved]
  - Hepatotoxicity [Fatal]

NARRATIVE: CASE EVENT DATE: 20141024
